FAERS Safety Report 8378763-2 (Version None)
Quarter: 2012Q2

REPORT INFORMATION
  Report Type: 
  Country: None (occurrence: None)
  Receive Date: 20120522
  Receipt Date: 20120509
  Transmission Date: 20120825
  Serious: Yes (Death, Life-Threatening, Hospitalization, Disabling, Other)
  Sender: FDA-Public Use
  Company Number: US-MYLANLABS-2009AC000334

PATIENT
  Sex: Male
  Weight: 78.93 kg

DRUGS (53)
  1. PROTONIX [Concomitant]
  2. LEXAPRO [Concomitant]
  3. PLAVIX [Concomitant]
  4. COMPAZINE [Concomitant]
  5. ZESTRIL [Concomitant]
  6. ALBUTEROL [Concomitant]
  7. PROVIGIL [Concomitant]
  8. POTASSIUM CHLORIDE [Concomitant]
  9. SPIRIVA [Concomitant]
  10. SOLU-MEDROL [Concomitant]
     Route: 042
  11. PNEUMOCOCCAL VACCINE [Concomitant]
  12. LEVAQUIN [Concomitant]
  13. MULTI-VITAMINS [Concomitant]
  14. VANCOMYCIN [Concomitant]
  15. LIPITOR [Concomitant]
  16. PREDNISONE [Concomitant]
  17. CELEBREX [Concomitant]
  18. ADVAIR DISKUS 100/50 [Concomitant]
     Dosage: 250/50 ONE PUFF
  19. ANTIBIOTICS [Concomitant]
  20. ALDACTONE [Concomitant]
  21. BENADRYL [Concomitant]
  22. INSULIN [Concomitant]
  23. DUONEB [Concomitant]
  24. COLACE [Concomitant]
  25. FUROSEMIDE [Concomitant]
  26. ATROVENT [Concomitant]
  27. ZITHROMAX [Concomitant]
     Route: 042
  28. ARICEPT [Concomitant]
  29. SINGULAIR [Concomitant]
  30. NICOTINE [Concomitant]
     Route: 062
  31. ATROPINE [Concomitant]
  32. TYLENOL (CAPLET) [Concomitant]
  33. ASPIRIN [Concomitant]
  34. DULCOLAX [Concomitant]
  35. FOSAMAX [Concomitant]
  36. LOTENSIN [Concomitant]
  37. AZITHROMYCIN [Concomitant]
  38. PULMICORT [Concomitant]
  39. FLOVENT [Concomitant]
  40. CALCIUM PLUS VITAMIN D [Concomitant]
  41. LOVENOX [Concomitant]
  42. DILANTIN [Concomitant]
  43. DIGOXIN [Suspect]
     Route: 048
     Dates: start: 20040810, end: 20070427
  44. MORPHINE SULFATE [Concomitant]
  45. ATIVAN [Concomitant]
  46. METHOTREXATE [Concomitant]
  47. NAMENDA [Concomitant]
  48. FOLIC ACID [Concomitant]
  49. ROCEPHIN [Concomitant]
  50. BENAZEPRIL HYDROCHLORIDE [Concomitant]
  51. PROVENTIL [Concomitant]
  52. AMBIEN [Concomitant]
  53. FLAGYL [Concomitant]

REACTIONS (124)
  - RESPIRATORY FAILURE [None]
  - ANGINA UNSTABLE [None]
  - PARTIAL SEIZURES [None]
  - SEPSIS [None]
  - HYPOTENSION [None]
  - ARTERIOSCLEROSIS [None]
  - DISCOMFORT [None]
  - DIZZINESS [None]
  - DYSSTASIA [None]
  - EATING DISORDER [None]
  - LARYNGEAL DISORDER [None]
  - MASTICATION DISORDER [None]
  - OCCULT BLOOD POSITIVE [None]
  - PAIN [None]
  - TOBACCO ABUSE [None]
  - PNEUMONIA STAPHYLOCOCCAL [None]
  - PLEURAL EFFUSION [None]
  - MITRAL VALVE INCOMPETENCE [None]
  - ATELECTASIS [None]
  - ANXIETY [None]
  - AORTIC DISORDER [None]
  - BLOOD PRESSURE SYSTOLIC INCREASED [None]
  - BODY TEMPERATURE INCREASED [None]
  - BRONCHITIS [None]
  - CONJUNCTIVAL HAEMORRHAGE [None]
  - GAIT DISTURBANCE [None]
  - GENERAL PHYSICAL HEALTH DETERIORATION [None]
  - HEART SOUNDS ABNORMAL [None]
  - MOBILITY DECREASED [None]
  - NON-CARDIAC CHEST PAIN [None]
  - SOMNOLENCE [None]
  - DEATH [None]
  - ADRENAL INSUFFICIENCY [None]
  - HOSPICE CARE [None]
  - HEMIPARESIS [None]
  - ATRIAL FIBRILLATION [None]
  - PNEUMONITIS [None]
  - ABDOMINAL DISTENSION [None]
  - CEREBRAL ATROPHY [None]
  - DISTURBANCE IN ATTENTION [None]
  - NEUROLOGICAL DECOMPENSATION [None]
  - OXYGEN SATURATION DECREASED [None]
  - REFUSAL OF TREATMENT BY PATIENT [None]
  - RHEUMATOID ARTHRITIS [None]
  - CARDIOMYOPATHY [None]
  - CHRONIC OBSTRUCTIVE PULMONARY DISEASE [None]
  - THROMBOCYTOPENIA [None]
  - CARDIAC FAILURE CONGESTIVE [None]
  - HYPOKINESIA [None]
  - DISEASE RECURRENCE [None]
  - BALANCE DISORDER [None]
  - BREATH SOUNDS ABNORMAL [None]
  - CEREBRAL SMALL VESSEL ISCHAEMIC DISEASE [None]
  - COGNITIVE DISORDER [None]
  - DEHYDRATION [None]
  - DIARRHOEA [None]
  - DYSPHAGIA [None]
  - HEART RATE IRREGULAR [None]
  - OEDEMA PERIPHERAL [None]
  - PHARYNGEAL DISORDER [None]
  - SKIN DISORDER [None]
  - TACHYPNOEA [None]
  - INJURY [None]
  - PNEUMONIA ASPIRATION [None]
  - HYPERTENSION [None]
  - LEUKOCYTOSIS [None]
  - CHEST PAIN [None]
  - HYPERHIDROSIS [None]
  - DYSPNOEA [None]
  - HYPOXIA [None]
  - CORONARY ARTERY DISEASE [None]
  - CHEST DISCOMFORT [None]
  - COLD SWEAT [None]
  - ELECTROCARDIOGRAM ABNORMAL [None]
  - FLAT AFFECT [None]
  - INTERSTITIAL LUNG DISEASE [None]
  - LEFT VENTRICULAR DYSFUNCTION [None]
  - LETHARGY [None]
  - LUNG DISORDER [None]
  - OSTEOPOROSIS [None]
  - RALES [None]
  - DYSLIPIDAEMIA [None]
  - OSTEOARTHRITIS [None]
  - BUNDLE BRANCH BLOCK RIGHT [None]
  - DEMENTIA [None]
  - PARKINSONISM [None]
  - AORTIC ANEURYSM [None]
  - APHASIA [None]
  - DEEP VEIN THROMBOSIS [None]
  - BRONCHIAL SECRETION RETENTION [None]
  - DISORIENTATION [None]
  - HYPOVOLAEMIA [None]
  - INFECTION [None]
  - MALAISE [None]
  - MENTAL STATUS CHANGES [None]
  - PERIPHERAL COLDNESS [None]
  - URINARY TRACT INFECTION [None]
  - SEPTIC SHOCK [None]
  - CEREBROVASCULAR ACCIDENT [None]
  - HYPERGLYCAEMIA [None]
  - DISEASE PROGRESSION [None]
  - PULMONARY FIBROSIS [None]
  - CARDIAC DISORDER [None]
  - CONDITION AGGRAVATED [None]
  - MECHANICAL VENTILATION [None]
  - RHONCHI [None]
  - SINUS TACHYCARDIA [None]
  - ECONOMIC PROBLEM [None]
  - ILL-DEFINED DISORDER [None]
  - ANAEMIA [None]
  - VASCULAR DEMENTIA [None]
  - ENDOTRACHEAL INTUBATION [None]
  - BRONCHOSPASM [None]
  - ASTHENIA [None]
  - CONFUSIONAL STATE [None]
  - COUGH [None]
  - FATIGUE [None]
  - FEELING ABNORMAL [None]
  - INFLAMMATION [None]
  - MOTOR DYSFUNCTION [None]
  - SCAR [None]
  - SINUSITIS [None]
  - SPUTUM DISCOLOURED [None]
  - WALKING AID USER [None]
